FAERS Safety Report 5209213-2 (Version None)
Quarter: 2007Q1

REPORT INFORMATION
  Report Type: 
  Country: None (occurrence: None)
  Receive Date: 20070116
  Receipt Date: 20070105
  Transmission Date: 20070707
  Serious: Yes (Hospitalization)
  Sender: FDA-Public Use
  Company Number: NL-ROCHE-477622

PATIENT
  Age: 52 Year
  Sex: Female

DRUGS (7)
  1. CAPECITABINE [Suspect]
     Dosage: GIVEN ON DAYS 1 TO 14 EVERY THREE WEEKS.
     Route: 048
     Dates: start: 20061213
  2. BEVACIZUMAB [Suspect]
     Dosage: GIVEN ON DAY ONE EVERY THREE WEEKS.
     Route: 042
     Dates: start: 20061213
  3. OXALIPLATIN [Suspect]
     Dosage: GIVEN ON DAY ONE EVERY THREE WEEKS.
     Route: 042
     Dates: start: 20061213
  4. CETUXIMAB [Suspect]
     Dosage: GIVEN ON DAYS 1, 8 AND 15 EVERY THREE WEEKS.
     Route: 042
     Dates: start: 20061213
  5. IMODIUM [Concomitant]
  6. DEXAMETHASONE [Concomitant]
     Dosage: DOSE REPORTED AS 2DD2.
  7. METOCLOPRAMIDE [Concomitant]
     Dosage: DOSE REPORTED AS 4DD2.

REACTIONS (4)
  - ANOREXIA [None]
  - DIARRHOEA [None]
  - MUCOSAL INFLAMMATION [None]
  - VOMITING [None]
